FAERS Safety Report 8909198 (Version 1)
Quarter: 2012Q4

REPORT INFORMATION
  Report Type: Spontaneous
  Country: US (occurrence: None)
  Receive Date: 20121113
  Receipt Date: 20121113
  Transmission Date: 20130627
  Serious: No
  Sender: FDA-Public Use
  Company Number: None

PATIENT
  Age: 3 Month
  Sex: Female
  Weight: 85.5 kg

DRUGS (1)
  1. RITUXAN [Suspect]
     Dosage: 1000mg day one and 15 IV
     Route: 042
     Dates: start: 20121108

REACTIONS (2)
  - Cough [None]
  - Nasal discomfort [None]
